FAERS Safety Report 6618131-4 (Version None)
Quarter: 2010Q1

REPORT INFORMATION
  Report Type: 
  Country: None (occurrence: None)
  Receive Date: 20100302
  Receipt Date: 20100217
  Transmission Date: 20100710
  Serious: Yes (Other)
  Sender: FDA-Public Use
  Company Number: 1000011372

PATIENT
  Age: 52 Year
  Sex: Female

DRUGS (11)
  1. ESCITALOPRAM [Suspect]
     Indication: FATIGUE
     Dosage: 10 MG (10 MG, 1 IN 1 D), ORAL
     Route: 048
     Dates: start: 20080707, end: 20091201
  2. ESCITALOPRAM [Suspect]
     Indication: DEPRESSION
     Dosage: 20 MG (20 MG, 1 IN 1 D), ORAL; 10 MG (10 MG, 1 IN 1 D), ORAL
     Route: 048
     Dates: start: 20091202, end: 20091220
  3. ESCITALOPRAM [Suspect]
     Indication: FATIGUE
     Dosage: 20 MG (20 MG, 1 IN 1 D), ORAL; 10 MG (10 MG, 1 IN 1 D), ORAL
     Route: 048
     Dates: start: 20091202, end: 20091220
  4. ESCITALOPRAM [Suspect]
     Indication: DEPRESSION
     Dosage: 20 MG (20 MG, 1 IN 1 D), ORAL; 10 MG (10 MG, 1 IN 1 D), ORAL
     Route: 048
     Dates: start: 20091221
  5. ESCITALOPRAM [Suspect]
     Indication: FATIGUE
     Dosage: 20 MG (20 MG, 1 IN 1 D), ORAL; 10 MG (10 MG, 1 IN 1 D), ORAL
     Route: 048
     Dates: start: 20091221
  6. Q10 [Concomitant]
  7. LOVAZA [Concomitant]
  8. HALIBUT [Concomitant]
  9. FEMOSTON [Concomitant]
  10. DAFALGAN [Concomitant]
  11. ASPIRIN [Concomitant]

REACTIONS (5)
  - ABDOMINAL SYMPTOM [None]
  - EPISTAXIS [None]
  - GINGIVAL BLEEDING [None]
  - OEDEMA PERIPHERAL [None]
  - VASCULAR RUPTURE [None]
